FAERS Safety Report 8628082 (Version 2)
Quarter: 2012Q4

REPORT INFORMATION
  Report Type: 
  Country: BR (occurrence: BR)
  Receive Date: 20120621
  Receipt Date: 20121206
  Transmission Date: 20130627
  Serious: Yes (Other)
  Sender: FDA-Public Use
  Company Number: BR-BAYER-200816524LA

PATIENT
  Age: 32 Year
  Sex: Female

DRUGS (3)
  1. MIRENA [Suspect]
     Indication: ENDOMETRIOSIS
     Dosage: 20 mcg/24hr, CONT
     Route: 015
     Dates: start: 20080707, end: 20090306
  2. MIRENA [Suspect]
     Indication: CONTRACEPTION
  3. MIRENA [Suspect]
     Indication: MENSTRUAL FLOW ALTERED

REACTIONS (4)
  - Device dislocation [None]
  - Pregnancy with contraceptive device [None]
  - Medication error [None]
  - Procedural pain [Recovered/Resolved]
